FAERS Safety Report 5518307-3 (Version None)
Quarter: 2007Q4

REPORT INFORMATION
  Report Type: 
  Country: None (occurrence: None)
  Receive Date: 20071114
  Receipt Date: 20071114
  Transmission Date: 20080405
  Serious: Yes (Hospitalization)
  Sender: FDA-Public Use
  Company Number: None

PATIENT
  Age: 47 Year
  Sex: Female

DRUGS (5)
  1. CIPROFLOXACIN [Suspect]
     Indication: URINARY TRACT INFECTION
     Dosage: 500 MG BID PO  3.5 DAYS
     Route: 048
     Dates: start: 20060903, end: 20060907
  2. PROZAC [Concomitant]
  3. ALLEGRA D 24 HOUR [Concomitant]
  4. IBUPROFEN [Concomitant]
  5. AMBIEN [Concomitant]

REACTIONS (1)
  - STEVENS-JOHNSON SYNDROME [None]
